FAERS Safety Report 5104291-3 (Version None)
Quarter: 2006Q3

REPORT INFORMATION
  Report Type: 
  Country: None (occurrence: None)
  Receive Date: 20060912
  Receipt Date: 20060912
  Transmission Date: 20061208
  Serious: Yes (Hospitalization)
  Sender: FDA-Public Use
  Company Number: None

PATIENT
  Sex: Male

DRUGS (17)
  1. WARFARIN SODIUM [Suspect]
     Indication: ATRIAL FIBRILLATION
     Dosage: 7.5 MG/5 MG    MWF/OTHER DAYS   PO
     Route: 048
  2. WARFARIN SODIUM [Suspect]
     Indication: CEREBROVASCULAR ACCIDENT
     Dosage: 7.5 MG/5 MG    MWF/OTHER DAYS   PO
     Route: 048
  3. WARFARIN SODIUM [Suspect]
     Indication: TRANSIENT ISCHAEMIC ATTACK
     Dosage: 7.5 MG/5 MG    MWF/OTHER DAYS   PO
     Route: 048
  4. DOCUSATE [Concomitant]
  5. OMEPRAZOLE [Concomitant]
  6. LEVOTHYROXINE SODIUM [Concomitant]
  7. POTASSIUM CHLORIDE [Concomitant]
  8. GLYBURIDE [Concomitant]
  9. CLOPIDOGREL [Concomitant]
  10. NIFEREX [Concomitant]
  11. CARVEDILOL [Concomitant]
  12. ASPIRIN [Concomitant]
  13. ISOSORBIDE MONONITRATE [Concomitant]
  14. DIGOXIN [Concomitant]
  15. AMLODIPINE [Concomitant]
  16. TAMSULOSIN HCL [Concomitant]
  17. BUMETANIDE [Concomitant]

REACTIONS (1)
  - INTRACRANIAL ANEURYSM [None]
